FAERS Safety Report 25244882 (Version 4)
Quarter: 2025Q3

REPORT INFORMATION
  Report Type: Spontaneous
  Country: JP (occurrence: JP)
  Receive Date: 20250428
  Receipt Date: 20250909
  Transmission Date: 20251020
  Serious: Yes (Death, Life-Threatening, Hospitalization, Other)
  Sender: PFIZER
  Company Number: JP-PFIZER INC-202500087129

PATIENT
  Age: 66 Year
  Sex: Male
  Weight: 60 kg

DRUGS (13)
  1. METHYLPREDNISOLONE SODIUM SUCCINATE [Suspect]
     Active Substance: METHYLPREDNISOLONE SODIUM SUCCINATE
     Indication: COVID-19 pneumonia
     Dosage: 1000 MG, DAILY
  2. METHYLPREDNISOLONE SODIUM SUCCINATE [Suspect]
     Active Substance: METHYLPREDNISOLONE SODIUM SUCCINATE
     Dosage: 1000 MG, DAILY
  3. METHYLPREDNISOLONE SODIUM SUCCINATE [Suspect]
     Active Substance: METHYLPREDNISOLONE SODIUM SUCCINATE
     Dosage: 1000 MG, DAILY
  4. METHYLPREDNISOLONE SODIUM SUCCINATE [Suspect]
     Active Substance: METHYLPREDNISOLONE SODIUM SUCCINATE
     Dosage: 500 MG, DAILY
  5. METHYLPREDNISOLONE SODIUM SUCCINATE [Suspect]
     Active Substance: METHYLPREDNISOLONE SODIUM SUCCINATE
     Dosage: 250 MG, DAILY
  6. PREDNISOLONE SODIUM SUCCINATE [Suspect]
     Active Substance: PREDNISOLONE SODIUM SUCCINATE
     Indication: COVID-19 pneumonia
     Dosage: 120 MG, DAILY
  7. PREDNISOLONE SODIUM SUCCINATE [Suspect]
     Active Substance: PREDNISOLONE SODIUM SUCCINATE
     Dosage: 120 MG, DAILY
  8. PREDNISOLONE SODIUM SUCCINATE [Suspect]
     Active Substance: PREDNISOLONE SODIUM SUCCINATE
     Dosage: 120 MG, DAILY
  9. DEXAMETHASONE [Suspect]
     Active Substance: DEXAMETHASONE
     Indication: COVID-19 pneumonia
     Dosage: 6 MG, DAILY
  10. PREDNISOLONE [Suspect]
     Active Substance: PREDNISOLONE
     Indication: COVID-19 pneumonia
     Dosage: 30 MG, DAILY
  11. REMDESIVIR [Concomitant]
     Active Substance: REMDESIVIR
     Indication: COVID-19 pneumonia
  12. NIRMATRELVIR\RITONAVIR [Concomitant]
     Active Substance: NIRMATRELVIR\RITONAVIR
     Indication: COVID-19 pneumonia
  13. BARICITINIB [Concomitant]
     Active Substance: BARICITINIB
     Indication: COVID-19 pneumonia

REACTIONS (8)
  - Renal embolism [Fatal]
  - Cytomegalovirus infection [Fatal]
  - Diffuse alveolar damage [Fatal]
  - Respiratory tract infection bacterial [Fatal]
  - Respiratory tract infection viral [Fatal]
  - Respiratory tract infection fungal [Fatal]
  - Immunosuppression [Unknown]
  - Embolism venous [Unknown]
